FAERS Safety Report 5150306-6 (Version None)
Quarter: 2006Q4

REPORT INFORMATION
  Report Type: 
  Country: None (occurrence: None)
  Receive Date: 20061114
  Receipt Date: 20061030
  Transmission Date: 20070319
  Serious: Yes (Hospitalization, Other)
  Sender: FDA-Public Use
  Company Number: US-BAYER-200616210BWH

PATIENT
  Age: 32 Year
  Sex: Male

DRUGS (18)
  1. MOXIFLOXACIN HCL [Suspect]
     Indication: BURSITIS INFECTIVE
     Dosage: TOTAL DAILY DOSE: 400 MG  UNIT DOSE: 400 MG
     Route: 048
     Dates: start: 20060526, end: 20060529
  2. AZITHROMYCIN [Suspect]
     Indication: BURSITIS
     Dosage: TOTAL DAILY DOSE: 250 MG  UNIT DOSE: 250 MG
     Route: 048
     Dates: start: 20060526, end: 20060604
  3. RIFABUTIN [Suspect]
     Indication: BURSITIS
     Dosage: TOTAL DAILY DOSE: 300 MG  UNIT DOSE: 300 MG
     Route: 048
     Dates: start: 20060530, end: 20060604
  4. INVESTIGATIONAL DRUG [Suspect]
     Indication: DERMATITIS
     Dates: start: 20051103
  5. PREDNISONE TAB [Concomitant]
     Indication: INFLAMMATION
     Dates: start: 19930801
  6. NAPROXEN [Concomitant]
     Indication: PAIN
     Dates: start: 19930101
  7. PRILOSEC [Concomitant]
     Indication: PROPHYLAXIS
     Dates: start: 19930101
  8. CALCIUM CARBONATE [Concomitant]
     Indication: PROPHYLAXIS
     Dates: start: 20040101
  9. ZYRTEC [Concomitant]
     Indication: SEASONAL ALLERGY
     Dates: start: 20030916
  10. ACTONEL [Concomitant]
     Indication: PROPHYLAXIS
     Dates: start: 20040801
  11. MULTI-VITAMIN [Concomitant]
     Indication: VITAMIN SUPPLEMENTATION
     Dates: start: 20041001
  12. VICODIN [Concomitant]
     Indication: PAIN
     Dates: start: 20040901
  13. CYMBALTA [Concomitant]
     Indication: DEPRESSION
     Dates: start: 20050101
  14. LISINOPRIL [Concomitant]
     Indication: HYPERTENSION
     Dates: start: 20060328
  15. GEMFIBROZIL [Concomitant]
     Indication: HYPERCHOLESTEROLAEMIA
     Dates: start: 20060222
  16. SELENIUM SULFIDE SHAMPOO [Concomitant]
     Indication: RASH
     Dates: start: 20060222
  17. KLONOPIN [Concomitant]
     Indication: ANXIETY
     Dates: start: 19930101
  18. CELEBREX [Concomitant]
     Indication: PAIN
     Dates: start: 20060526, end: 20060608

REACTIONS (11)
  - APOPTOSIS [None]
  - ERYTHEMA [None]
  - LICHENOID KERATOSIS [None]
  - LYMPHOCYTIC INFILTRATION [None]
  - NAUSEA [None]
  - ORTHOSTATIC HYPOTENSION [None]
  - PYREXIA [None]
  - RASH [None]
  - RASH PAPULAR [None]
  - RASH PRURITIC [None]
  - VOMITING [None]
